FAERS Safety Report 18132754 (Version 7)
Quarter: 2021Q1

REPORT INFORMATION
  Report Type: Spontaneous
  Country: US (occurrence: US)
  Receive Date: 20200811
  Receipt Date: 20210202
  Transmission Date: 20210419
  Serious: Yes (Other)
  Sender: FDA-Public Use
  Company Number: US-ELI_LILLY_AND_COMPANY-US202008002270

PATIENT
  Age: 63 Year
  Sex: Female

DRUGS (6)
  1. AVASTIN [SIMVASTATIN] [Suspect]
     Active Substance: SIMVASTATIN
     Indication: PRODUCT USED FOR UNKNOWN INDICATION
     Dosage: UNK, UNKNOWN
     Route: 065
  2. GABAPENTIN. [Concomitant]
     Active Substance: GABAPENTIN
     Indication: PRODUCT USED FOR UNKNOWN INDICATION
  3. XELODA [Concomitant]
     Active Substance: CAPECITABINE
     Indication: PRODUCT USED FOR UNKNOWN INDICATION
  4. CBD OIL [Concomitant]
     Active Substance: CANNABIDIOL\HERBALS
     Indication: PRODUCT USED FOR UNKNOWN INDICATION
  5. CYMBALTA [Suspect]
     Active Substance: DULOXETINE HYDROCHLORIDE
     Indication: PRODUCT USED FOR UNKNOWN INDICATION
     Dosage: UNK UNK, UNKNOWN
     Route: 065
  6. HERCEPTIN [Concomitant]
     Active Substance: TRASTUZUMAB
     Indication: PRODUCT USED FOR UNKNOWN INDICATION

REACTIONS (30)
  - Ulcer [Unknown]
  - Dry eye [Unknown]
  - Blood pressure increased [Unknown]
  - Epistaxis [Unknown]
  - Pain [Unknown]
  - Platelet count decreased [Unknown]
  - Stomatitis [Unknown]
  - Rash pruritic [Unknown]
  - Gait disturbance [Unknown]
  - Balance disorder [Unknown]
  - Drug interaction [Unknown]
  - Cerebral disorder [Unknown]
  - Abdominal pain [Recovering/Resolving]
  - Abdominal discomfort [Unknown]
  - Bone neoplasm [Unknown]
  - Headache [Unknown]
  - Vitamin D decreased [Unknown]
  - Neuralgia [Unknown]
  - Abdominal pain lower [Unknown]
  - Dehydration [Unknown]
  - Fungal infection [Unknown]
  - Urinary tract infection [Unknown]
  - Hypoaesthesia [Unknown]
  - Cystitis [Unknown]
  - Night sweats [Unknown]
  - Haemorrhoids [Unknown]
  - Taste disorder [Unknown]
  - Arthropod bite [Unknown]
  - Diarrhoea [Unknown]
  - Pain in extremity [Unknown]
